FAERS Safety Report 5126727-4 (Version None)
Quarter: 2006Q4

REPORT INFORMATION
  Report Type: 
  Country: None (occurrence: None)
  Receive Date: 20061012
  Receipt Date: 20061012
  Transmission Date: 20070319
  Serious: Yes (Hospitalization)
  Sender: FDA-Public Use
  Company Number: None

PATIENT
  Sex: Female
  Weight: 68.7 kg

DRUGS (6)
  1. TEMOZOLOMIDE [Suspect]
     Dosage: 3640 MG
  2. BACTRIM [Concomitant]
  3. DEXAMETHASONE TAB [Concomitant]
  4. KEPPRA [Concomitant]
  5. PREMPRO [Concomitant]
  6. ZOFRAN [Concomitant]

REACTIONS (4)
  - HAEMORRHOIDS [None]
  - PLATELET COUNT DECREASED [None]
  - PROCTALGIA [None]
  - WHITE BLOOD CELL COUNT DECREASED [None]
